FAERS Safety Report 4474857-2 (Version None)
Quarter: 2004Q4

REPORT INFORMATION
  Report Type: 
  Country: None (occurrence: None)
  Receive Date: 20041012
  Receipt Date: 20040927
  Transmission Date: 20050328
  Serious: Yes (Life-Threatening, Hospitalization, Other)
  Sender: FDA-Public Use
  Company Number: 209285

PATIENT
  Age: 55 Year
  Sex: Male
  Weight: 114.1 kg

DRUGS (9)
  1. RITUXAN [Suspect]
     Indication: DIFFUSE LARGE B-CELL LYMPHOMA
     Dosage: 850 MG, INTRAVENOUS
     Route: 042
     Dates: start: 20020701
  2. CYCLOPHOSPHAMIDE [Suspect]
     Indication: DIFFUSE LARGE B-CELL LYMPHOMA
     Dosage: 1700 MG, INTRAVENOUS
     Route: 042
     Dates: start: 20020701
  3. DOXORUBICIN (DOXURIBICIN, DOXORUBICIN HYDROCHLORIDE) [Suspect]
     Indication: DIFFUSE LARGE B-CELL LYMPHOMA
     Dosage: 115 MG, INTRAVENOUS
     Route: 042
     Dates: start: 20020701
  4. VINCRISTINE [Suspect]
     Indication: DIFFUSE LARGE B-CELL LYMPHOMA
     Dosage: 2 MG, INTRAVENOUS
     Route: 042
     Dates: start: 20020701
  5. PREDNISONE [Suspect]
     Indication: DIFFUSE LARGE B-CELL LYMPHOMA
     Dosage: 100 MG, QDX5D/21DC, ORAL
     Route: 048
     Dates: start: 20020701
  6. CIALIS [Concomitant]
  7. DAPA-TABS (INDAPAMIDE) [Concomitant]
  8. ATENOLOL [Concomitant]
  9. RAMIPRIL [Concomitant]

REACTIONS (1)
  - ACUTE MYELOID LEUKAEMIA [None]
